FAERS Safety Report 9222931 (Version 1)
Quarter: 2013Q1

REPORT INFORMATION
  Report Type: Spontaneous
  Country: US (occurrence: None)
  Receive Date: 20120912
  Receipt Date: 20120912
  Transmission Date: 20140127
  Serious: No
  Sender: FDA-Public Use
  Company Number: 2012SP028923

PATIENT
  Age: 57 Year
  Sex: Male

DRUGS (3)
  1. VICTRELIS 200 MG [Suspect]
     Indication: HEPATITIS C
     Route: 048
     Dates: start: 20120213
  2. PEGASYS [Suspect]
     Indication: HEPATITIS C
     Dosage: 180 MCG; QW
     Dates: start: 20120113
  3. RIBAPAK [Suspect]
     Indication: HEPATITIS C
     Dosage: QAM
     Dates: start: 20120113

REACTIONS (2)
  - Pruritus [None]
  - Dry skin [None]
